FAERS Safety Report 24306599 (Version 1)
Quarter: 2024Q3

REPORT INFORMATION
  Report Type: Spontaneous
  Country: US (occurrence: None)
  Receive Date: 20240910
  Receipt Date: 20240910
  Transmission Date: 20241017
  Serious: No
  Sender: Public
  Company Number: None

PATIENT
  Age: 20 Year
  Sex: Female
  Weight: 47.63 kg

DRUGS (1)
  1. COSENTYX [Suspect]
     Active Substance: SECUKINUMAB
     Indication: Axial spondyloarthritis
     Dosage: OTHER FREQUENCY : ON DAY 28, DOSE 5,THEN EVERY 4 WKS, AS DIR;?
     Route: 058
     Dates: start: 202407

REACTIONS (1)
  - Urinary tract infection [None]
